FAERS Safety Report 8103316-0 (Version None)
Quarter: 2011Q4

REPORT INFORMATION
  Report Type: 
  Country: None (occurrence: None)
  Receive Date: 20111222
  Receipt Date: 20110928
  Transmission Date: 20120403
  Serious: Yes (Hospitalization)
  Sender: FDA-Public Use
  Company Number: UTC-010197

PATIENT
  Age: 71 Year
  Sex: Female
  Weight: 72.7 kg

DRUGS (3)
  1. TRACLEER [Concomitant]
  2. TYVASO [Suspect]
     Indication: COR PULMONALE CHRONIC
     Dosage: 18-54 MICROGRAMS (4 IN 1 D),INHALATION
     Route: 055
     Dates: start: 20101215, end: 20110831
  3. REVATIO (SILDENFIL CITRATE) [Concomitant]

REACTIONS (4)
  - DIZZINESS [None]
  - CHRONIC OBSTRUCTIVE PULMONARY DISEASE [None]
  - DRUG INEFFECTIVE [None]
  - COUGH [None]
